FAERS Safety Report 8833423 (Version 1)
Quarter: 2012Q4

REPORT INFORMATION
  Report Type: 
  Country: US (occurrence: US)
  Receive Date: 20121010
  Receipt Date: 20121010
  Transmission Date: 20130627
  Serious: Yes (Other)
  Sender: FDA-Public Use
  Company Number: US-PFIZER INC-2012249735

PATIENT
  Age: 52 Year
  Sex: Male
  Weight: 111.57 kg

DRUGS (15)
  1. NEURONTIN [Suspect]
     Indication: NEUROPATHY PERIPHERAL
     Dosage: 600 mg, 3x/day
     Route: 048
  2. TOPROL XL [Concomitant]
     Dosage: 200 mg, 1x/day
     Route: 048
  3. CALCIUM CHLORIDE [Concomitant]
     Dosage: 20 mg, 2x/day
     Route: 048
  4. SIMVASTATIN [Concomitant]
     Dosage: 20 mg, 1x/day
     Route: 048
  5. DOCUSATE/SENNA [Concomitant]
     Dosage: 1 DF, 1x/day
     Route: 048
  6. HUMULIN R [Concomitant]
     Indication: TYPE 1 DIABETES MELLITUS
     Dosage: 30 IU, UNK
  7. LORTAB [Concomitant]
     Indication: PAIN
     Dosage: 7.5/500 mg, as needed
     Route: 048
  8. PLAVIX [Concomitant]
     Dosage: 75 mg, 1x/day
     Route: 048
  9. LASIX [Concomitant]
     Dosage: 20 mg, 1x/day
     Route: 048
  10. ALLOPURINOL [Concomitant]
     Dosage: 100 mg, 2x/day
     Route: 048
  11. ASPIRIN [Concomitant]
     Dosage: 81 mg, 1x/day
     Route: 048
  12. SYNTHROID [Concomitant]
     Indication: HYPERTHYROIDISM
     Dosage: 50 mg, 1x/day
     Route: 048
  13. COZAAR [Concomitant]
     Indication: HYPERTENSION
     Dosage: 100 mg, UNK
     Route: 048
  14. HYDRALAZINE HYDROCHLORIDE [Concomitant]
     Dosage: 50 mg, every 8 hours
     Route: 048
  15. LANTUS [Concomitant]
     Indication: TYPE 1 DIABETES MELLITUS
     Dosage: 60 IU, 2x/day

REACTIONS (3)
  - Pneumonia [Unknown]
  - Loss of consciousness [Unknown]
  - Musculoskeletal disorder [Unknown]
